FAERS Safety Report 9099799 (Version 1)
Quarter: 2013Q1

REPORT INFORMATION
  Report Type: Spontaneous
  Country: US (occurrence: US)
  Receive Date: 20130214
  Receipt Date: 20130214
  Transmission Date: 20140127
  Serious: Yes (Other)
  Sender: FDA-Public Use
  Company Number: US-ROCHE-1189754

PATIENT
  Sex: Female

DRUGS (8)
  1. XELODA [Suspect]
     Indication: BREAST CANCER METASTATIC
     Route: 065
     Dates: start: 201209
  2. PERJETA [Suspect]
     Indication: BREAST CANCER METASTATIC
     Route: 065
  3. HERCEPTIN [Suspect]
     Indication: BREAST CANCER METASTATIC
     Route: 065
  4. TYKERB [Suspect]
     Indication: BREAST CANCER METASTATIC
     Route: 065
     Dates: start: 201209
  5. TAXOTERE [Suspect]
     Indication: BREAST CANCER METASTATIC
     Route: 065
  6. 5-FLUOROURACIL [Concomitant]
  7. EPIRUBICIN [Concomitant]
  8. CYCLOPHOSPHAMIDE [Concomitant]

REACTIONS (5)
  - Neoplasm [Not Recovered/Not Resolved]
  - Skin ulcer [Not Recovered/Not Resolved]
  - Stomatitis [Not Recovered/Not Resolved]
  - Nausea [Not Recovered/Not Resolved]
  - Diarrhoea [Not Recovered/Not Resolved]
